FAERS Safety Report 20917549 (Version 1)
Quarter: 2022Q2

REPORT INFORMATION
  Report Type: Spontaneous
  Country: US (occurrence: US)
  Receive Date: 20220606
  Receipt Date: 20220606
  Transmission Date: 20220721
  Serious: Yes (Other)
  Sender: FDA-Public Use
  Company Number: US-SA-SAC20220601000713

PATIENT
  Age: 56 Year
  Sex: Male

DRUGS (1)
  1. ZANTAC [Suspect]
     Active Substance: RANITIDINE HYDROCHLORIDE
     Dosage: 75 MG, QD
     Dates: start: 200001, end: 200601

REACTIONS (3)
  - Prostate cancer [Recovered/Resolved]
  - Skin cancer [Recovered/Resolved]
  - Lung carcinoma cell type unspecified stage II [Recovered/Resolved]

NARRATIVE: CASE EVENT DATE: 20060101
